FAERS Safety Report 5491649-6 (Version None)
Quarter: 2007Q4

REPORT INFORMATION
  Report Type: 
  Country: None (occurrence: None)
  Receive Date: 20071018
  Receipt Date: 20071018
  Transmission Date: 20080405
  Serious: Yes (Hospitalization)
  Sender: FDA-Public Use
  Company Number: None

PATIENT
  Age: 2 Year
  Sex: Male
  Weight: 12.9729 kg

DRUGS (1)
  1. ZONISAMIDE [Suspect]
     Indication: CONVULSION
     Dosage: 100 MG QHS PO
     Route: 048
     Dates: start: 20070319, end: 20070928

REACTIONS (2)
  - CALCULUS URETERIC [None]
  - NEPHROLITHIASIS [None]
